FAERS Safety Report 9695331 (Version 1)
Quarter: 2013Q4

REPORT INFORMATION
  Report Type: Spontaneous
  Country: US (occurrence: None)
  Receive Date: 20131118
  Receipt Date: 20131118
  Transmission Date: 20140711
  Serious: No
  Sender: FDA-Public Use
  Company Number: None

PATIENT
  Age: 61 Year
  Sex: Female
  Weight: 65.77 kg

DRUGS (1)
  1. VICODIN [Suspect]
     Indication: FIBULA FRACTURE
     Dosage: 1-2 PILLS THREE TIMES DAILY
     Route: 048
     Dates: start: 20131115, end: 20131116

REACTIONS (2)
  - Abdominal discomfort [None]
  - Diarrhoea [None]
